FAERS Safety Report 10396029 (Version 1)
Quarter: 2014Q3

REPORT INFORMATION
  Report Type: Spontaneous
  Country: GB (occurrence: GB)
  Receive Date: 20140820
  Receipt Date: 20140820
  Transmission Date: 20150326
  Serious: Yes (Other)
  Sender: FDA-Public Use
  Company Number: GB-TEVA-501244ISR

PATIENT
  Age: 71 Year
  Sex: Male
  Weight: 82.75 kg

DRUGS (9)
  1. INDAPAMIDE. [Concomitant]
     Active Substance: INDAPAMIDE
     Dates: start: 20140801
  2. ATORVASTATIN [Concomitant]
     Active Substance: ATORVASTATIN
     Dates: start: 20140310
  3. RAMIPRIL. [Suspect]
     Active Substance: RAMIPRIL
     Dates: start: 20140801
  4. TERBINAFINE [Concomitant]
     Active Substance: TERBINAFINE
     Dates: start: 20140710, end: 20140725
  5. RAMIPRIL. [Suspect]
     Active Substance: RAMIPRIL
     Dates: start: 20140612, end: 20140710
  6. SOLIFENACIN [Concomitant]
     Active Substance: SOLIFENACIN
     Dates: start: 20140801
  7. AMLODIPINE [Concomitant]
     Active Substance: AMLODIPINE BESYLATE
     Dates: start: 20140310
  8. SOLIFENACIN [Concomitant]
     Active Substance: SOLIFENACIN
     Dates: start: 20140310, end: 20140509
  9. TERBINAFINE [Concomitant]
     Active Substance: TERBINAFINE
     Dates: start: 20140516, end: 20140531

REACTIONS (9)
  - Nightmare [Unknown]
  - Myalgia [Unknown]
  - Vertigo [Unknown]
  - Depressed mood [Unknown]
  - Diarrhoea [Unknown]
  - Oral mucosal blistering [Unknown]
  - Nasal congestion [Unknown]
  - Dizziness [Recovered/Resolved]
  - Vision blurred [Unknown]

NARRATIVE: CASE EVENT DATE: 20140801
